FAERS Safety Report 5127013-9 (Version None)
Quarter: 2006Q4

REPORT INFORMATION
  Report Type: 
  Country: None (occurrence: None)
  Receive Date: 20061013
  Receipt Date: 20060913
  Transmission Date: 20070319
  Serious: Yes (Hospitalization)
  Sender: FDA-Public Use
  Company Number: FR-GLAXOSMITHKLINE-B0439041A

PATIENT
  Age: 30 Year
  Sex: Male
  Weight: 75 kg

DRUGS (9)
  1. ARIXTRA [Suspect]
     Indication: PHLEBITIS
     Dosage: 7.5MG PER DAY
     Route: 058
     Dates: start: 20060828, end: 20060905
  2. ROCEPHIN [Concomitant]
     Indication: CELLULITIS
     Dosage: 2G PER DAY
     Route: 042
     Dates: start: 20060905, end: 20060910
  3. FLAGYL [Concomitant]
     Indication: CELLULITIS
     Dosage: 500MG THREE TIMES PER DAY
     Route: 042
     Dates: start: 20060905, end: 20060910
  4. AUGMENTIN [Concomitant]
     Indication: CELLULITIS
     Dosage: 1G THREE TIMES PER DAY
     Route: 048
     Dates: start: 20060825, end: 20060904
  5. CIFLOX [Concomitant]
     Dosage: 50MG TWICE PER DAY
     Route: 048
     Dates: start: 20060825, end: 20060904
  6. PREVISCAN [Concomitant]
     Indication: PHLEBITIS
     Dosage: 1UNIT PER DAY
     Route: 048
     Dates: start: 20060830
  7. TRIFLUCAN [Concomitant]
     Indication: CANDIDIASIS
     Dosage: 100MG PER DAY
     Route: 048
     Dates: start: 20060830, end: 20060904
  8. DI ANTALVIC [Concomitant]
     Dosage: 2CAP THREE TIMES PER DAY
     Route: 048
     Dates: start: 20060903, end: 20060905
  9. MOTILIUM [Concomitant]
     Dosage: 1TAB THREE TIMES PER DAY
     Route: 048
     Dates: start: 20060901, end: 20060905

REACTIONS (6)
  - ANOREXIA [None]
  - CHOLESTASIS [None]
  - GAMMA-GLUTAMYLTRANSFERASE INCREASED [None]
  - HEPATOCELLULAR DAMAGE [None]
  - HEPATOMEGALY [None]
  - PYREXIA [None]
